FAERS Safety Report 14194842 (Version 1)
Quarter: 2017Q4

REPORT INFORMATION
  Report Type: Spontaneous
  Country: IN (occurrence: IN)
  Receive Date: 20171116
  Receipt Date: 20171116
  Transmission Date: 20180321
  Serious: Yes (Other)
  Sender: FDA-Public Use
  Company Number: IN-BAYER-2017-217319

PATIENT
  Age: 36 Year
  Sex: Female

DRUGS (5)
  1. LABETALOL [Concomitant]
     Active Substance: LABETALOL\LABETALOL HYDROCHLORIDE
     Dosage: 300 MG, UNK
     Route: 048
  2. METHYLDOPA. [Concomitant]
     Active Substance: METHYLDOPA
     Indication: ACUTE RESPIRATORY DISTRESS SYNDROME
     Dosage: 1500 MG, UNK
     Route: 048
  3. BETAMETHASONE. [Concomitant]
     Active Substance: BETAMETHASONE
     Indication: ACUTE RESPIRATORY DISTRESS SYNDROME
  4. CEFTRIAXONE. [Concomitant]
     Active Substance: CEFTRIAXONE
     Indication: ANTIBIOTIC PROPHYLAXIS
     Dosage: TEST DOSE OF 0.5 ML OF 2 GRAM
     Route: 023
  5. ACETYLSALICYLIC ACID({=100 MG) [Suspect]
     Active Substance: ASPIRIN
     Indication: PRE-ECLAMPSIA

REACTIONS (6)
  - Premature delivery [None]
  - Product use in unapproved indication [None]
  - Off label use [None]
  - Medication monitoring error [None]
  - Contraindicated product administered [None]
  - Maternal exposure during pregnancy [None]
